FAERS Safety Report 8195845-9 (Version None)
Quarter: 2012Q1

REPORT INFORMATION
  Report Type: 
  Country: None (occurrence: None)
  Receive Date: 20120308
  Receipt Date: 20120302
  Transmission Date: 20120608
  Serious: Yes (Other)
  Sender: FDA-Public Use
  Company Number: AU-ABBOTT-11P-008-0883524-00

PATIENT

DRUGS (1)
  1. RITONAVIR [Suspect]
     Indication: HIV INFECTION

REACTIONS (2)
  - VIRAL MUTATION IDENTIFIED [None]
  - HEPATITIS B [None]
